FAERS Safety Report 5925620-4 (Version None)
Quarter: 2008Q4

REPORT INFORMATION
  Report Type: 
  Country: None (occurrence: None)
  Receive Date: 20081021
  Receipt Date: 20081014
  Transmission Date: 20090506
  Serious: Yes (Other)
  Sender: FDA-Public Use
  Company Number: B0542466A

PATIENT
  Age: 23 Year
  Sex: Female

DRUGS (10)
  1. ZOFRAN [Suspect]
     Indication: THERMAL BURN
     Dosage: 8MG PER DAY
     Route: 042
     Dates: start: 20080720, end: 20080730
  2. ENANTYUM [Suspect]
     Indication: THERMAL BURN
     Dosage: 150MG PER DAY
     Route: 042
     Dates: start: 20080720, end: 20080730
  3. PANTOPRAZOL [Concomitant]
     Dosage: 40MG PER DAY
     Route: 042
     Dates: start: 20080720
  4. TOBRAMYCIN [Concomitant]
     Dosage: 300MG PER DAY
     Route: 042
     Dates: start: 20080722, end: 20080728
  5. CEFAZOLIN [Concomitant]
     Dosage: 6G PER DAY
     Route: 042
     Dates: start: 20080722, end: 20080728
  6. DOLANTINA [Concomitant]
     Route: 042
     Dates: start: 20080720
  7. HIBOR [Concomitant]
     Dosage: 3500IU PER DAY
     Route: 058
     Dates: start: 20080720
  8. LEXATIN [Concomitant]
     Dosage: 4.5MG PER DAY
     Route: 048
     Dates: start: 20080722, end: 20080728
  9. NOLOTIL [Concomitant]
     Dosage: 8G PER DAY
     Route: 042
     Dates: start: 20080720
  10. PERFALGAN [Concomitant]
     Dosage: 4G PER DAY
     Route: 042
     Dates: start: 20080720

REACTIONS (1)
  - HEPATIC LESION [None]
